FAERS Safety Report 5509010-4 (Version None)
Quarter: 2007Q4

REPORT INFORMATION
  Report Type: 
  Country: None (occurrence: None)
  Receive Date: 20071107
  Receipt Date: 20071031
  Transmission Date: 20080405
  Serious: Yes (Other)
  Sender: FDA-Public Use
  Company Number: US-PURDUE-USA_2007_0030032

PATIENT
  Sex: Male

DRUGS (2)
  1. OXYCONTIN [Suspect]
     Indication: DRUG ABUSE
     Dosage: UNK MG, UNK
  2. HEROIN [Suspect]
     Indication: DRUG ABUSE
     Dosage: UNK, UNK

REACTIONS (3)
  - ACCIDENTAL EXPOSURE [None]
  - INJURY [None]
  - LOSS OF CONSCIOUSNESS [None]
